FAERS Safety Report 5607857-7 (Version None)
Quarter: 2008Q1

REPORT INFORMATION
  Report Type: 
  Country: None (occurrence: None)
  Receive Date: 20080130
  Receipt Date: 20071130
  Transmission Date: 20080703
  Serious: Yes (Hospitalization)
  Sender: FDA-Public Use
  Company Number: IT-BAYER-200718396GPV

PATIENT
  Age: 57 Year
  Sex: Male

DRUGS (2)
  1. NEXAVAR [Suspect]
     Indication: RENAL CELL CARCINOMA STAGE IV
     Dosage: TOTAL DAILY DOSE: 400 MG
     Route: 048
     Dates: start: 20060928, end: 20070523
  2. ZOMETA [Concomitant]
     Indication: METASTASES TO BONE
     Dosage: TOTAL DAILY DOSE: 4 MG
     Route: 042

REACTIONS (1)
  - DIARRHOEA [None]
